FAERS Safety Report 12174015 (Version 1)
Quarter: 2016Q1

REPORT INFORMATION
  Report Type: Spontaneous
  Country: US (occurrence: US)
  Receive Date: 20160314
  Receipt Date: 20160314
  Transmission Date: 20160526
  Serious: Yes (Other)
  Sender: FDA-Public Use
  Company Number: US-ROCHE-1722644

PATIENT
  Age: 55 Year
  Sex: Male

DRUGS (3)
  1. XELODA [Suspect]
     Active Substance: CAPECITABINE
     Indication: COLORECTAL CANCER
     Dosage: 1325 MG BID (1650 MG DAILY) WHICH IS ROUGHLY 500 MG 2 TABS PO QAM AND 3 TABS PO QPM FOR 2 WEEKS ON,
     Route: 065
  2. 5-FU [Concomitant]
     Active Substance: FLUOROURACIL
     Route: 065
  3. CAMPTOSAR [Suspect]
     Active Substance: IRINOTECAN HYDROCHLORIDE
     Indication: COLORECTAL CANCER
     Dosage: 3 VIALS 200MG/M2=354 MG
     Route: 065
     Dates: start: 20140118

REACTIONS (1)
  - Colon cancer [Unknown]

NARRATIVE: CASE EVENT DATE: 20151005
